FAERS Safety Report 23211782 (Version 1)
Quarter: 2023Q4

REPORT INFORMATION
  Report Type: Spontaneous
  Country: DE (occurrence: DE)
  Receive Date: 20231121
  Receipt Date: 20231121
  Transmission Date: 20240109
  Serious: Yes (Other)
  Sender: FDA-Public Use
  Company Number: DE-JNJFOC-20230859947

PATIENT
  Age: 8 Decade

DRUGS (32)
  1. BORTEZOMIB [Suspect]
     Active Substance: BORTEZOMIB
     Indication: Plasma cell myeloma
     Dosage: 1.3 MG/M2 AS PART OF BRIDGING THERAPY
     Route: 065
     Dates: start: 20230517
  2. BORTEZOMIB [Suspect]
     Active Substance: BORTEZOMIB
     Dosage: 1.3 MG/M2 BRIDGING THERAPY
     Route: 065
     Dates: start: 20230520
  3. BORTEZOMIB [Suspect]
     Active Substance: BORTEZOMIB
     Dosage: 1.3 MG/M2 BRIDGING THERAPY, SECOND CYCLE
     Route: 065
     Dates: start: 20230613
  4. BORTEZOMIB [Suspect]
     Active Substance: BORTEZOMIB
     Dosage: 1.3 MG/M2 BRIDGING THERAPY, THIRD CYCLE
     Route: 065
     Dates: start: 20230704
  5. DEXAMETHASONE [Suspect]
     Active Substance: DEXAMETHASONE
     Indication: Plasma cell myeloma
     Dosage: 20 MG
     Route: 065
     Dates: start: 20230516
  6. DEXAMETHASONE [Suspect]
     Active Substance: DEXAMETHASONE
     Dosage: 20 MG
     Route: 065
     Dates: start: 20230517
  7. DEXAMETHASONE [Suspect]
     Active Substance: DEXAMETHASONE
     Dosage: 20 MG
     Route: 065
     Dates: start: 20230518
  8. DEXAMETHASONE [Suspect]
     Active Substance: DEXAMETHASONE
     Dosage: 20 MG
     Route: 065
     Dates: start: 20230520
  9. DEXAMETHASONE [Suspect]
     Active Substance: DEXAMETHASONE
     Dosage: 20 MG
     Route: 065
     Dates: start: 20230521
  10. DEXAMETHASONE [Suspect]
     Active Substance: DEXAMETHASONE
     Dosage: 20 MG BRIDGING THERAPY, SECOND CYCLE
     Route: 065
     Dates: start: 20230612
  11. DEXAMETHASONE [Suspect]
     Active Substance: DEXAMETHASONE
     Dosage: 20 MG BRIDGING THERAPY, SECOND CYCLE
     Route: 065
     Dates: start: 20230613
  12. DEXAMETHASONE [Suspect]
     Active Substance: DEXAMETHASONE
     Dosage: 20 MG BRIDGING THERAPY, SECOND CYCLE
     Route: 065
     Dates: start: 20230614
  13. DEXAMETHASONE [Suspect]
     Active Substance: DEXAMETHASONE
     Dosage: 20 MG BRIDGING THERAPY, THIRD CYCLE
     Route: 065
     Dates: start: 20230704
  14. DEXAMETHASONE [Suspect]
     Active Substance: DEXAMETHASONE
     Dosage: 20 MG BRIDGING THERAPY, THIRD CYCLE
     Route: 065
     Dates: start: 20230705
  15. DEXAMETHASONE [Suspect]
     Active Substance: DEXAMETHASONE
     Dosage: 20 MG BRIDGING THERAPY, THIRD CYCLE
     Route: 065
     Dates: start: 20230706
  16. DOXORUBICIN [Suspect]
     Active Substance: DOXORUBICIN
     Dosage: 6 MG/M2 BRIDGING THERAPY, FOURTH CYCLE
     Route: 065
     Dates: start: 20230805, end: 20230808
  17. DOXORUBICIN [Suspect]
     Active Substance: DOXORUBICIN
     Indication: Plasma cell myeloma
     Dosage: 9 MG/M2 BRIDGING THERAPY, C1
     Route: 065
     Dates: start: 20230517, end: 20230520
  18. DOXORUBICIN [Suspect]
     Active Substance: DOXORUBICIN
     Dosage: 9 MG/M2 BRIDGING THERAPY, SECOND CYCLE
     Route: 065
     Dates: start: 20230613
  19. DOXORUBICIN [Suspect]
     Active Substance: DOXORUBICIN
     Dosage: 9 MG/M2 BRIDGING THERAPY, SECOND CYCLE
     Route: 065
     Dates: start: 20230614
  20. DOXORUBICIN [Suspect]
     Active Substance: DOXORUBICIN
     Dosage: 9 MG/M2 BRIDGING THERAPY, SECOND CYCLE
     Route: 065
     Dates: start: 20230615
  21. DOXORUBICIN [Suspect]
     Active Substance: DOXORUBICIN
     Dosage: 9 MG/M2 BRIDGING THERAPY, THIRD CYCLE
     Route: 065
     Dates: start: 20230705
  22. DOXORUBICIN [Suspect]
     Active Substance: DOXORUBICIN
     Dosage: 9 MG/M2 BRIDGING THERAPY, THIRD CYCLE
     Route: 065
     Dates: start: 20230706
  23. DOXORUBICIN [Suspect]
     Active Substance: DOXORUBICIN
     Dosage: 9 MG/M2 BRIDGING THERAPY, THIRD CYCLE
     Route: 065
     Dates: start: 20230707
  24. DARZALEX [Suspect]
     Active Substance: DARATUMUMAB
     Dosage: 16 MG/M2
     Route: 065
     Dates: start: 20230521
  25. DARZALEX [Suspect]
     Active Substance: DARATUMUMAB
     Dosage: 16 MG/M2
     Route: 065
     Dates: start: 20230612
  26. DARZALEX [Suspect]
     Active Substance: DARATUMUMAB
     Indication: Plasma cell myeloma
     Dosage: 16 MG/M2 AS PART OF BRIDGING THERAPY
     Route: 065
     Dates: start: 20230516
  27. DARZALEX [Suspect]
     Active Substance: DARATUMUMAB
     Dosage: 16 MG/M2 BRIDGING THERAPY, SECOND CYCLE
     Route: 065
     Dates: start: 20230615
  28. DARZALEX [Suspect]
     Active Substance: DARATUMUMAB
     Dosage: 16 MG/M2 BRIDGING THERAPY, THIRD CYCLE
     Route: 065
     Dates: start: 20230704
  29. DARZALEX [Suspect]
     Active Substance: DARATUMUMAB
     Dosage: 16 MG/M2 BRIDGING THERAPY, THIRD CYCLE
     Route: 065
     Dates: start: 20230707
  30. POMALIDOMIDE [Suspect]
     Active Substance: POMALIDOMIDE
     Dosage: 2 MG BRIDGING THERAPY, THIRD CYCLE
     Route: 065
     Dates: start: 20230705, end: 20230707
  31. POMALIDOMIDE [Suspect]
     Active Substance: POMALIDOMIDE
     Dosage: 4 MG
     Route: 065
     Dates: start: 20230517, end: 20230530
  32. POMALIDOMIDE [Suspect]
     Active Substance: POMALIDOMIDE
     Indication: Plasma cell myeloma
     Dosage: 4 MG BRIDGING THERAPY, SECOND CYCLE
     Route: 065
     Dates: start: 20230513, end: 20230615

REACTIONS (2)
  - Plasma cell myeloma [Unknown]
  - Intentional product use issue [Unknown]

NARRATIVE: CASE EVENT DATE: 20230101
